FAERS Safety Report 18212223 (Version 1)
Quarter: 2020Q3

REPORT INFORMATION
  Report Type: Spontaneous
  Country: DE (occurrence: DE)
  Receive Date: 20200831
  Receipt Date: 20200831
  Transmission Date: 20201103
  Serious: Yes (Other)
  Sender: FDA-Public Use
  Company Number: DE-JNJFOC-20200841398

PATIENT
  Sex: Male

DRUGS (2)
  1. CETIRIZINE HYDROCHLORIDE. [Suspect]
     Active Substance: CETIRIZINE HYDROCHLORIDE
     Indication: PRODUCT USED FOR UNKNOWN INDICATION
     Dosage: TREATMENT FOR YEARS
     Route: 065
  2. FENISTIL [Suspect]
     Active Substance: DIMETHINDENE
     Indication: MAGNETIC RESONANCE IMAGING
     Route: 065

REACTIONS (2)
  - Seizure [Unknown]
  - Drug hypersensitivity [Unknown]
